FAERS Safety Report 7072885-4 (Version None)
Quarter: 2010Q4

REPORT INFORMATION
  Report Type: 
  Country: None (occurrence: None)
  Receive Date: 20101029
  Receipt Date: 20100325
  Transmission Date: 20110411
  Serious: Yes (Hospitalization)
  Sender: FDA-Public Use
  Company Number: A0852002A

PATIENT
  Age: 69 Year
  Sex: Male

DRUGS (13)
  1. ADVAIR DISKUS 100/50 [Suspect]
     Indication: CHRONIC OBSTRUCTIVE PULMONARY DISEASE
     Dosage: 1PUFF TWICE PER DAY
     Route: 055
     Dates: start: 20070101
  2. COMBIVENT [Concomitant]
  3. UNSPECIFIED MEDICATION [Concomitant]
     Route: 055
  4. OXYGEN [Concomitant]
  5. KLOR-CON [Concomitant]
  6. FUROSEMIDE [Concomitant]
  7. PREDNISONE [Concomitant]
  8. XALATAN [Concomitant]
  9. PROPOXY-N [Concomitant]
  10. FEXOFENADINE HCL [Concomitant]
  11. LORAZEPAM [Concomitant]
  12. SINUS MEDICATION [Concomitant]
  13. ALLERGY MEDICATION [Concomitant]

REACTIONS (1)
  - PNEUMONIA [None]
